FAERS Safety Report 8417951-3 (Version None)
Quarter: 2012Q2

REPORT INFORMATION
  Report Type: 
  Country: None (occurrence: None)
  Receive Date: 20120531
  Receipt Date: 20120518
  Transmission Date: 20120825
  Serious: Yes (Death)
  Sender: FDA-Public Use
  Company Number: FK201201408

PATIENT
  Age: 24 Year
  Sex: Male

DRUGS (1)
  1. PROPOFOL [Suspect]
     Indication: SEDATION
     Dosage: 3MG/KG/H

REACTIONS (8)
  - METABOLIC ACIDOSIS [None]
  - RHABDOMYOLYSIS [None]
  - BLOOD LACTIC ACID INCREASED [None]
  - PYREXIA [None]
  - DIALYSIS [None]
  - SHOCK [None]
  - RENAL FAILURE ACUTE [None]
  - CARDIAC ARREST [None]
